FAERS Safety Report 8499213-1 (Version None)
Quarter: 2012Q2

REPORT INFORMATION
  Report Type: 
  Country: None (occurrence: None)
  Receive Date: 20120405
  Receipt Date: 20110222
  Transmission Date: 20120825
  Serious: Yes (Other)
  Sender: FDA-Public Use
  Company Number: PHHY2010US80943

PATIENT
  Age: 49 Year
  Sex: Female
  Weight: 64.4 kg

DRUGS (4)
  1. CALCIUM CARBONATE [Concomitant]
  2. PRISTIQ [Concomitant]
  3. VITAMIN D [Concomitant]
  4. RECLAST [Suspect]
     Indication: OSTEOPOROSIS
     Dosage: 5 MG/YEAR, INTRAVENOUS
     Route: 042
     Dates: start: 20101123

REACTIONS (7)
  - BONE PAIN [None]
  - DIZZINESS [None]
  - BACK PAIN [None]
  - NAUSEA [None]
  - PYREXIA [None]
  - CHEST PAIN [None]
  - PAIN [None]
